FAERS Safety Report 6392551-8 (Version None)
Quarter: 2009Q4

REPORT INFORMATION
  Report Type: 
  Country: None (occurrence: None)
  Receive Date: 20091007
  Receipt Date: 20090930
  Transmission Date: 20100525
  Serious: Yes (Hospitalization)
  Sender: FDA-Public Use
  Company Number: NL-MERCK-0910NLD00002

PATIENT
  Age: 69 Year
  Sex: Male

DRUGS (19)
  1. ZOCOR [Suspect]
     Route: 048
  2. HYDROCHLOROTHIAZIDE [Concomitant]
     Route: 048
  3. AZATHIOPRINE [Concomitant]
     Route: 048
  4. PREDNISOLONE [Concomitant]
     Route: 048
  5. ISOSORBIDE MONONITRATE [Concomitant]
     Route: 048
  6. NITROGLYCERIN [Concomitant]
     Route: 060
  7. LACTIC ACID AND UREA [Concomitant]
     Route: 061
  8. COAL TAR AND MENTHOL [Concomitant]
     Route: 061
  9. ENALAPRIL MALEATE [Concomitant]
     Route: 048
  10. GLIMEPIRIDE [Concomitant]
     Route: 048
  11. IMIQUIMOD [Concomitant]
     Route: 061
  12. PETROLATUM, WHITE [Concomitant]
     Route: 061
  13. DILTIAZEM HYDROCHLORIDE [Interacting]
     Route: 048
  14. METOPROLOL SUCCINATE [Concomitant]
     Route: 048
  15. METFORMIN [Concomitant]
     Route: 048
  16. METFORMIN [Concomitant]
     Route: 048
  17. OMEPRAZOLE [Concomitant]
     Route: 048
  18. AZATHIOPRINE [Concomitant]
     Route: 048
  19. [COMPOSITION UNSPECIFIED] [Concomitant]
     Indication: PROPHYLAXIS
     Route: 065

REACTIONS (2)
  - INHIBITORY DRUG INTERACTION [None]
  - MUSCLE RUPTURE [None]
